FAERS Safety Report 8196092-7 (Version None)
Quarter: 2012Q1

REPORT INFORMATION
  Report Type: 
  Country: None (occurrence: None)
  Receive Date: 20120309
  Receipt Date: 20120301
  Transmission Date: 20120608
  Serious: Yes (Hospitalization)
  Sender: FDA-Public Use
  Company Number: DE-GENZYME-CAMP-1002101

PATIENT
  Sex: Female
  Weight: 49 kg

DRUGS (2)
  1. ALEMTUZUMAB [Suspect]
     Indication: MULTIPLE SCLEROSIS
     Dosage: 12 MG, QDX5
     Route: 042
  2. REBIF [Concomitant]
     Indication: MULTIPLE SCLEROSIS
     Dosage: 44 MCG, UNK
     Route: 058
     Dates: start: 20090330, end: 20110318

REACTIONS (3)
  - HYPOAESTHESIA [None]
  - APPENDICITIS [None]
  - ABSCESS [None]
